FAERS Safety Report 10770427 (Version 1)
Quarter: 2015Q1

REPORT INFORMATION
  Report Type: Spontaneous
  Country: US (occurrence: None)
  Receive Date: 20150204
  Receipt Date: 20150204
  Transmission Date: 20150721
  Serious: Yes (Death)
  Sender: FDA-Public Use
  Company Number: 2726861

PATIENT
  Age: 35 Year
  Sex: Male

DRUGS (5)
  1. HYDROMORPHONE HYDROCHLORIDE. [Suspect]
     Active Substance: HYDROMORPHONE HYDROCHLORIDE
  2. TRAMADOL [Suspect]
     Active Substance: TRAMADOL
  3. OXYCODONE [Suspect]
     Active Substance: OXYCODONE
  4. COCAINE [Suspect]
     Active Substance: COCAINE
  5. ALPRAZOLAM. [Suspect]
     Active Substance: ALPRAZOLAM

REACTIONS (2)
  - Poisoning [None]
  - Drug abuse [None]

NARRATIVE: CASE EVENT DATE: 2013
